FAERS Safety Report 12110684 (Version 1)
Quarter: 2016Q1

REPORT INFORMATION
  Report Type: Spontaneous
  Country: FR (occurrence: FR)
  Receive Date: 20160224
  Receipt Date: 20160224
  Transmission Date: 20160526
  Serious: Yes (Hospitalization)
  Sender: FDA-Public Use
  Company Number: FR-JAZZ-2015-FR-004352

PATIENT
  Age: 64 Year
  Sex: Male

DRUGS (22)
  1. PRIALT [Suspect]
     Active Substance: ZICONOTIDE ACETATE
     Indication: BONE PAIN
     Dosage: 0.833 ?G, QH
     Route: 037
     Dates: start: 201408, end: 20140919
  2. PRIALT [Suspect]
     Active Substance: ZICONOTIDE ACETATE
     Dosage: 1.04 ?G, QH
     Route: 037
     Dates: start: 20141006, end: 20141208
  3. MORPHINE [Suspect]
     Active Substance: MORPHINE
     Dosage: 4.79 MG, QH
     Route: 037
     Dates: start: 20140919, end: 20141006
  4. EDURANT [Concomitant]
     Active Substance: RILPIVIRINE HYDROCHLORIDE
     Dosage: 25 MG, UNK
  5. MEDROL [Concomitant]
     Active Substance: METHYLPREDNISOLONE
     Dosage: 32 MG, UNK
  6. ALPRAZOLAM. [Concomitant]
     Active Substance: ALPRAZOLAM
     Dosage: 1 IU, AS REQUIRED
  7. MORPHINE [Suspect]
     Active Substance: MORPHINE
     Indication: BONE PAIN
     Dosage: 3.5 MG, QH
     Route: 037
     Dates: start: 201408, end: 20140919
  8. NAROPEINE [Suspect]
     Active Substance: ROPIVACAINE HYDROCHLORIDE
     Dosage: UNK MG, QH
     Route: 037
     Dates: start: 20141216
  9. MORPHINE [Suspect]
     Active Substance: MORPHINE
     Dosage: 4.58 MG, QH
     Route: 037
     Dates: start: 20141006, end: 20141208
  10. NAROPEINE [Suspect]
     Active Substance: ROPIVACAINE HYDROCHLORIDE
     Indication: BONE PAIN
     Dosage: 15.63 MG, QH
     Route: 037
     Dates: start: 201408, end: 20140919
  11. HAVLANE [Concomitant]
     Active Substance: LOPRAZOLAM
     Dosage: 1 IU, UNK
  12. PRIALT [Suspect]
     Active Substance: ZICONOTIDE ACETATE
     Dosage: 1.67 ?G, QH
     Route: 037
     Dates: start: 20140919, end: 20141006
  13. PRIALT [Suspect]
     Active Substance: ZICONOTIDE ACETATE
     Dosage: 0.119 ?G, QH
     Route: 037
     Dates: start: 20141208, end: 20141216
  14. NAROPEINE [Suspect]
     Active Substance: ROPIVACAINE HYDROCHLORIDE
     Dosage: 18.75 MG, QH
     Route: 037
     Dates: start: 20141006, end: 20141208
  15. NAROPEINE [Suspect]
     Active Substance: ROPIVACAINE HYDROCHLORIDE
     Dosage: 1.96 MG, QH
     Route: 037
     Dates: start: 20141208, end: 20141216
  16. MORPHINE [Suspect]
     Active Substance: MORPHINE
     Dosage: 0.58 MG, QH
     Route: 037
     Dates: start: 20141208, end: 20141216
  17. NAROPEINE [Suspect]
     Active Substance: ROPIVACAINE HYDROCHLORIDE
     Dosage: 19.58 MG, QH
     Route: 037
     Dates: start: 20140919, end: 20141006
  18. PRIALT [Suspect]
     Active Substance: ZICONOTIDE ACETATE
     Dosage: 0.063 ?G, QH
     Route: 037
     Dates: start: 20141216
  19. EMTRICITABINE [Concomitant]
     Active Substance: EMTRICITABINE
     Dosage: 200 MG, UNK
     Dates: start: 201408
  20. LOPERAMIDE [Concomitant]
     Active Substance: LOPERAMIDE
     Dosage: 2 MG, AS REQUIRED
     Dates: start: 201408
  21. MORPHINE [Suspect]
     Active Substance: MORPHINE
     Dosage: UNK MG, QH
     Route: 037
     Dates: start: 20141216
  22. TENOFOVIR DISOPROXIL [Concomitant]
     Active Substance: TENOFOVIR DISOPROXIL
     Dosage: UNK
     Dates: start: 201408

REACTIONS (2)
  - Confusional state [Recovered/Resolved]
  - Hallucination, visual [Recovered/Resolved]

NARRATIVE: CASE EVENT DATE: 201410
